FAERS Safety Report 7946703-3 (Version None)
Quarter: 2011Q4

REPORT INFORMATION
  Report Type: 
  Country: None (occurrence: None)
  Receive Date: 20111129
  Receipt Date: 20111123
  Transmission Date: 20120403
  Serious: No
  Sender: FDA-Public Use
  Company Number: US-PFIZER INC-2011287589

PATIENT
  Age: 35 Year
  Sex: Male
  Weight: 72.562 kg

DRUGS (1)
  1. PRISTIQ [Suspect]
     Indication: DEPRESSION
     Dosage: 50 MG
     Route: 048
     Dates: start: 20080101

REACTIONS (1)
  - MEDICATION RESIDUE [None]
